FAERS Safety Report 13667019 (Version 1)
Quarter: 2017Q2

REPORT INFORMATION
  Report Type: Spontaneous
  Country: US (occurrence: US)
  Receive Date: 20170619
  Receipt Date: 20170619
  Transmission Date: 20170830
  Serious: No
  Sender: FDA-Public Use
  Company Number: US-ROCHE-1525034

PATIENT
  Sex: Male

DRUGS (2)
  1. XELODA [Suspect]
     Active Substance: CAPECITABINE
     Indication: NEOPLASM MALIGNANT
     Dosage: FOR 14 DAYS
     Route: 048
     Dates: start: 20141013
  2. XELODA [Suspect]
     Active Substance: CAPECITABINE
     Dosage: 3 TABS
     Route: 048
     Dates: start: 20141015

REACTIONS (4)
  - Fatigue [Not Recovered/Not Resolved]
  - Memory impairment [Not Recovered/Not Resolved]
  - Nausea [Unknown]
  - Crying [Unknown]
